FAERS Safety Report 6772258-5 (Version None)
Quarter: 2010Q2

REPORT INFORMATION
  Report Type: 
  Country: None (occurrence: None)
  Receive Date: 20100616
  Receipt Date: 20090817
  Transmission Date: 20101027
  Serious: No
  Sender: FDA-Public Use
  Company Number: US-ASTRAZENECA-2009SE08469

PATIENT
  Age: 79 Year
  Sex: Female
  Weight: 83.9 kg

DRUGS (8)
  1. PULMICORT FLEXHALER [Suspect]
     Indication: CHRONIC OBSTRUCTIVE PULMONARY DISEASE
     Route: 055
     Dates: start: 20090401
  2. DIOVAN [Concomitant]
  3. TYLENOL [Concomitant]
  4. POTASSIUM [Concomitant]
  5. CALCIUM GLUCONATE [Concomitant]
  6. LIPITOR [Concomitant]
  7. GLIPIZIDE [Concomitant]
  8. ANTI-ANXIETY MEDICATION [Concomitant]

REACTIONS (1)
  - ALOPECIA [None]
